FAERS Safety Report 25154093 (Version 4)
Quarter: 2025Q3

REPORT INFORMATION
  Report Type: Spontaneous
  Country: US (occurrence: US)
  Receive Date: 20250403
  Receipt Date: 20250905
  Transmission Date: 20251021
  Serious: Yes (Hospitalization)
  Sender: DOMPE FARMACEUTICI
  Company Number: US-FARMAPROD-202412-4136

PATIENT
  Sex: Male

DRUGS (34)
  1. OXERVATE [Suspect]
     Active Substance: CENEGERMIN-BKBJ
     Indication: Neurotrophic keratopathy
     Route: 047
     Dates: start: 20230926, end: 20231121
  2. OXERVATE [Suspect]
     Active Substance: CENEGERMIN-BKBJ
     Route: 047
     Dates: start: 20241124, end: 20250217
  3. OXERVATE [Suspect]
     Active Substance: CENEGERMIN-BKBJ
  4. OXERVATE [Suspect]
     Active Substance: CENEGERMIN-BKBJ
     Route: 047
     Dates: start: 20240207, end: 20240402
  5. OXERVATE [Suspect]
     Active Substance: CENEGERMIN-BKBJ
     Route: 047
     Dates: start: 20240405, end: 20240529
  6. OXERVATE [Suspect]
     Active Substance: CENEGERMIN-BKBJ
     Route: 047
     Dates: start: 20240604, end: 20240729
  7. OXERVATE [Suspect]
     Active Substance: CENEGERMIN-BKBJ
     Route: 047
     Dates: start: 20240730, end: 20240923
  8. OXERVATE [Suspect]
     Active Substance: CENEGERMIN-BKBJ
     Route: 047
     Dates: start: 20240924, end: 20241123
  9. OXERVATE [Suspect]
     Active Substance: CENEGERMIN-BKBJ
     Route: 047
     Dates: start: 20250310
  10. OXERVATE [Suspect]
     Active Substance: CENEGERMIN-BKBJ
  11. LISINOPRIL [Concomitant]
     Active Substance: LISINOPRIL
  12. IRON [Concomitant]
     Active Substance: IRON
  13. APPLE CIDER VINEGAR [Concomitant]
     Active Substance: APPLE CIDER VINEGAR
  14. COENZYME Q-10 [Concomitant]
  15. HERBALS\TURMERIC [Concomitant]
     Active Substance: HERBALS\TURMERIC
  16. SUPER B COMPLEX-VITAMIN C [Concomitant]
  17. GINKGO [Concomitant]
     Active Substance: GINKGO
  18. CALCIUM MAGNESIUM + D [Concomitant]
  19. GLUCOSAMINE-CHONDROITIN-D3 [Concomitant]
  20. OMEPRAZOLE [Concomitant]
     Active Substance: OMEPRAZOLE
  21. MIRTAZAPINE [Concomitant]
     Active Substance: MIRTAZAPINE
  22. METOPROLOL SUCCINATE [Concomitant]
     Active Substance: METOPROLOL SUCCINATE
  23. METFORMIN HYDROCHLORIDE [Concomitant]
     Active Substance: METFORMIN HYDROCHLORIDE
  24. LATANOPROST [Concomitant]
     Active Substance: LATANOPROST
  25. LASIX [Concomitant]
     Active Substance: FUROSEMIDE
  26. LAMOTRIGINE [Concomitant]
     Active Substance: LAMOTRIGINE
  27. FLUTICASONE PROPIONATE [Concomitant]
     Active Substance: FLUTICASONE PROPIONATE
  28. FEXOFENADINE HYDROCHLORIDE [Concomitant]
     Active Substance: FEXOFENADINE HYDROCHLORIDE
  29. DORZOLAMIDE AND TIMOLOL [Concomitant]
     Active Substance: DORZOLAMIDE HYDROCHLORIDE\TIMOLOL MALEATE
  30. BRIMONIDINE TARTRATE [Concomitant]
     Active Substance: BRIMONIDINE TARTRATE
  31. ATORVASTATIN CALCIUM [Concomitant]
     Active Substance: ATORVASTATIN CALCIUM
  32. ASPIRIN [Concomitant]
     Active Substance: ASPIRIN
  33. ALBUTEROL SULFATE [Concomitant]
     Active Substance: ALBUTEROL SULFATE
  34. UNSPECIFIED INGREDIENT [Concomitant]
     Active Substance: UNSPECIFIED INGREDIENT

REACTIONS (8)
  - Hospitalisation [Unknown]
  - Vision blurred [Not Recovered/Not Resolved]
  - Eye pain [Not Recovered/Not Resolved]
  - Eye irritation [Not Recovered/Not Resolved]
  - Treatment noncompliance [Unknown]
  - Product administration error [Unknown]
  - Product storage error [Unknown]
  - Product dose omission issue [Unknown]
